FAERS Safety Report 15344475 (Version 2)
Quarter: 2018Q4

REPORT INFORMATION
  Report Type: Spontaneous
  Country: US (occurrence: US)
  Receive Date: 20180903
  Receipt Date: 20181210
  Transmission Date: 20190204
  Serious: Yes (Other)
  Sender: FDA-Public Use
  Company Number: US-SA-2018SA242544

PATIENT
  Age: 44 Year
  Sex: Female
  Weight: 92.07 kg

DRUGS (15)
  1. NORCO [Concomitant]
     Active Substance: ACETAMINOPHEN\HYDROCODONE BITARTRATE
  2. EPIPEN [Concomitant]
     Active Substance: EPINEPHRINE
  3. HERCEPTIN [Concomitant]
     Active Substance: TRASTUZUMAB
  4. TAXOTERE [Suspect]
     Active Substance: DOCETAXEL
     Indication: BREAST CANCER
     Dosage: 77 MG, QW
     Route: 042
     Dates: start: 20140422, end: 20140422
  5. DECADRON [Concomitant]
     Active Substance: DEXAMETHASONE
  6. ZOFRAN [ONDANSETRON] [Concomitant]
  7. COLACE [Concomitant]
     Active Substance: DOCUSATE SODIUM
  8. TAXOTERE [Suspect]
     Active Substance: DOCETAXEL
     Dosage: 77 MG, QW
     Route: 042
     Dates: start: 20140825, end: 20140825
  9. PARAPLATIN [Concomitant]
     Active Substance: CARBOPLATIN
  10. LISINOPRIL. [Concomitant]
     Active Substance: LISINOPRIL
  11. HYDROCORTISONE. [Concomitant]
     Active Substance: HYDROCORTISONE
  12. FILGRASTIM [Concomitant]
     Active Substance: FILGRASTIM
  13. COMPAZINE [PROCHLORPERAZINE EDISYLATE] [Concomitant]
  14. PERCOCET [Concomitant]
     Active Substance: ACETAMINOPHEN\OXYCODONE HYDROCHLORIDE
  15. BENADRYL 24 D [Concomitant]
     Active Substance: LORATADINE\PSEUDOEPHEDRINE SULFATE

REACTIONS (1)
  - Alopecia [Not Recovered/Not Resolved]

NARRATIVE: CASE EVENT DATE: 20150225
